FAERS Safety Report 9417260 (Version 1)
Quarter: 2013Q3

REPORT INFORMATION
  Report Type: Spontaneous
  Country: JP (occurrence: None)
  Receive Date: 20130719
  Receipt Date: 20130719
  Transmission Date: 20140515
  Serious: Yes (Other)
  Sender: FDA-Public Use
  Company Number: DSJ-2013-15916

PATIENT
  Age: 82 Year
  Sex: Male

DRUGS (2)
  1. OLMETEC [Suspect]
     Indication: PRODUCT USED FOR UNKNOWN INDICATION
  2. FLUITRAN [Suspect]
     Route: 048
     Dates: start: 20080530

REACTIONS (1)
  - Pollakiuria [None]
